FAERS Safety Report 18585754 (Version 1)
Quarter: 2020Q4

REPORT INFORMATION
  Report Type: Spontaneous
  Country: US (occurrence: US)
  Receive Date: 20201207
  Receipt Date: 20201207
  Transmission Date: 20210114
  Serious: Yes (Other)
  Sender: FDA-Public Use
  Company Number: US-ASTRAZENECA-2020SF60865

PATIENT
  Sex: Female

DRUGS (3)
  1. ALBUTEROL. [Concomitant]
     Active Substance: ALBUTEROL
  2. SYMBICORT [Suspect]
     Active Substance: BUDESONIDE\FORMOTEROL FUMARATE DIHYDRATE
     Indication: PULMONARY CONGESTION
     Dosage: TWO TIMES A DAY
     Route: 055
  3. SYMBICORT [Suspect]
     Active Substance: BUDESONIDE\FORMOTEROL FUMARATE DIHYDRATE
     Indication: PULMONARY CONGESTION
     Dosage: ONCE DAILY
     Route: 055

REACTIONS (8)
  - Muscular weakness [Unknown]
  - Intentional product misuse [Unknown]
  - Sensory disturbance [Unknown]
  - Drug ineffective [Unknown]
  - Adrenal insufficiency [Unknown]
  - Product use issue [Unknown]
  - Dyspnoea [Unknown]
  - Muscle spasms [Unknown]
